FAERS Safety Report 15164486 (Version 4)
Quarter: 2018Q3

REPORT INFORMATION
  Report Type: Spontaneous
  Country: DE (occurrence: DE)
  Receive Date: 20180719
  Receipt Date: 20180904
  Transmission Date: 20181010
  Serious: Yes (Hospitalization, Other)
  Sender: FDA-Public Use
  Company Number: DE-009507513-1711DEU004707

PATIENT
  Age: 35 Year
  Sex: Female
  Weight: 53 kg

DRUGS (11)
  1. NUVARING [Suspect]
     Active Substance: ETHINYL ESTRADIOL\ETONOGESTREL
     Indication: CONTRACEPTION
     Dosage: UNK
     Route: 067
     Dates: start: 20170701, end: 20170812
  2. REMICADE [Concomitant]
     Active Substance: INFLIXIMAB
     Indication: COLITIS ULCERATIVE
     Dosage: UNK
     Dates: start: 201704
  3. XARELTO [Concomitant]
     Active Substance: RIVAROXABAN
     Dosage: 20 MG, QD
     Dates: start: 20170825
  4. PREDNISOLONE. [Concomitant]
     Active Substance: PREDNISOLONE
     Dosage: 2.5 MG, QD
  5. SALOFALK [Concomitant]
     Active Substance: MESALAMINE
     Dosage: 3 G, BID
  6. PANTOPRAZOLE [Concomitant]
     Active Substance: PANTOPRAZOLE
     Dosage: 40 MG, QD
  7. METFORMIN [Concomitant]
     Active Substance: METFORMIN HYDROCHLORIDE
     Dosage: 500 MG, BID
  8. XARELTO [Concomitant]
     Active Substance: RIVAROXABAN
     Dosage: 15 MG, BID
     Dates: end: 20170824
  9. AMOXI/CLAV [Concomitant]
     Dosage: 875/125 MG, BID
  10. DEKRISTOL [Concomitant]
     Active Substance: CHOLECALCIFEROL
     Dosage: 1000 IU, BID
  11. DEKRISTOL [Concomitant]
     Active Substance: CHOLECALCIFEROL
     Dosage: 1000 IE, QD

REACTIONS (3)
  - Pulmonary embolism [Recovered/Resolved]
  - Pneumonia [Unknown]
  - Iron deficiency [Unknown]

NARRATIVE: CASE EVENT DATE: 20170802
